FAERS Safety Report 15049348 (Version 1)
Quarter: 2018Q2

REPORT INFORMATION
  Report Type: Report from Study
  Country: JP (occurrence: JP)
  Receive Date: 20180622
  Receipt Date: 20180622
  Transmission Date: 20180711
  Serious: Yes (Other)
  Sender: FDA-Public Use
  Company Number: JP-ROCHE-1737495

PATIENT

DRUGS (3)
  1. TS-1 [Suspect]
     Active Substance: GIMERACIL\OTERACIL\TEGAFUR
     Indication: COLORECTAL CANCER METASTATIC
     Dosage: ON ALTERNATE DAYS AT A DOSE OF 40-60MG FROM DAYS 2-15
     Route: 048
  2. BEVACIZUMAB. [Suspect]
     Active Substance: BEVACIZUMAB
     Indication: COLORECTAL CANCER METASTATIC
     Dosage: ON DAY 1.
     Route: 042
  3. IRINOTECAN [Suspect]
     Active Substance: IRINOTECAN
     Indication: COLORECTAL CANCER METASTATIC
     Dosage: ON DAY 1.
     Route: 042

REACTIONS (13)
  - Decreased appetite [Unknown]
  - Neuropathy peripheral [Unknown]
  - Nausea [Unknown]
  - Diarrhoea [Unknown]
  - Vomiting [Unknown]
  - Mucosal inflammation [Unknown]
  - Stomatitis [Unknown]
  - Neutropenia [Unknown]
  - Anaemia [Unknown]
  - Pneumonia [Unknown]
  - Thrombocytopenia [Unknown]
  - Leukopenia [Unknown]
  - Fatigue [Unknown]
